FAERS Safety Report 21248405 (Version 1)
Quarter: 2022Q3

REPORT INFORMATION
  Report Type: Spontaneous
  Country: US (occurrence: US)
  Receive Date: 20220824
  Receipt Date: 20220824
  Transmission Date: 20221027
  Serious: No
  Sender: FDA-Public Use
  Company Number: US-BRISTOL-MYERS SQUIBB COMPANY-2022-094843

PATIENT
  Age: 82 Year
  Sex: Female
  Weight: 74.38 kg

DRUGS (1)
  1. REVLIMID [Suspect]
     Active Substance: LENALIDOMIDE
     Indication: Plasma cell myeloma
     Dosage: 10 MILLIGRAM DAILY FOR 14 DAYS
     Route: 048

REACTIONS (2)
  - Back pain [Unknown]
  - Intentional product use issue [Unknown]
